FAERS Safety Report 8777023 (Version 2)
Quarter: 2012Q4

REPORT INFORMATION
  Report Type: 
  Country: AR (occurrence: AR)
  Receive Date: 20120911
  Receipt Date: 20121002
  Transmission Date: 20130627
  Serious: Yes (Death, Other)
  Sender: FDA-Public Use
  Company Number: AR-WATSON-2012-15481

PATIENT
  Age: 80 Year
  Sex: Female

DRUGS (1)
  1. NAPROXEN SODIUM [Suspect]
     Indication: PYREXIA
     Dosage: 375 mg, bid
     Route: 065

REACTIONS (4)
  - Gastric ulcer [Fatal]
  - Drug administration error [Fatal]
  - Cardio-respiratory arrest [Fatal]
  - Upper gastrointestinal haemorrhage [Fatal]
